FAERS Safety Report 8030452-X (Version None)
Quarter: 2012Q1

REPORT INFORMATION
  Report Type: 
  Country: None (occurrence: None)
  Receive Date: 20120105
  Receipt Date: 20111221
  Transmission Date: 20120608
  Serious: Yes (Hospitalization)
  Sender: FDA-Public Use
  Company Number: LTI2011A00153

PATIENT
  Age: 44 Year
  Sex: Male

DRUGS (3)
  1. REPAGLINIDE [Concomitant]
  2. ACTOS [Suspect]
     Indication: TYPE 2 DIABETES MELLITUS
     Dosage: 30 MG (15 MG, 2 IN 1 D) ORAL
     Route: 048
     Dates: start: 20080226, end: 20110425
  3. GLYBURIDE [Concomitant]

REACTIONS (1)
  - BLADDER TRANSITIONAL CELL CARCINOMA [None]
